FAERS Safety Report 18043430 (Version 1)
Quarter: 2020Q3

REPORT INFORMATION
  Report Type: Report from Study
  Country: PA (occurrence: PA)
  Receive Date: 20200720
  Receipt Date: 20200720
  Transmission Date: 20201103
  Serious: Yes (Other)
  Sender: FDA-Public Use
  Company Number: NVSC2020PA201205

PATIENT
  Age: 69 Year
  Sex: Male

DRUGS (1)
  1. EXFORGE [Suspect]
     Active Substance: AMLODIPINE BESYLATE\VALSARTAN
     Indication: PRODUCT USED FOR UNKNOWN INDICATION
     Dosage: 10/320 MG, (STARTED 5 OR 6 YEARS AGO)
     Route: 065

REACTIONS (3)
  - Incorrect dose administered [Unknown]
  - Cerebrovascular accident [Unknown]
  - Blood pressure increased [Unknown]
